FAERS Safety Report 19134679 (Version 1)
Quarter: 2021Q2

REPORT INFORMATION
  Report Type: Spontaneous
  Country: US (occurrence: US)
  Receive Date: 20210413
  Receipt Date: 20210413
  Transmission Date: 20210717
  Serious: No
  Sender: FDA-Public Use
  Company Number: None

PATIENT
  Age: 34 Year
  Sex: Female
  Weight: 128.82 kg

DRUGS (4)
  1. METHOCARBAMOL. [Concomitant]
     Active Substance: METHOCARBAMOL
  2. PREDNISONE. [Concomitant]
     Active Substance: PREDNISONE
  3. MIRENA [Suspect]
     Active Substance: LEVONORGESTREL
  4. HYDROXYCYCLOROGUINE [Concomitant]

REACTIONS (2)
  - Complication of device removal [None]
  - Haemorrhage [None]

NARRATIVE: CASE EVENT DATE: 20210409
